FAERS Safety Report 4679256-6 (Version None)
Quarter: 2005Q2

REPORT INFORMATION
  Report Type: 
  Country: None (occurrence: None)
  Receive Date: 20050531
  Receipt Date: 20050524
  Transmission Date: 20051028
  Serious: Yes (Hospitalization)
  Sender: FDA-Public Use
  Company Number: FRWYE689924MAY05

PATIENT
  Age: 75 Year
  Sex: Male

DRUGS (7)
  1. EFFEXOR [Suspect]
     Indication: DEPRESSION
     Dosage: 150 MG 1X PER 1 DAY ORAL
     Route: 048
     Dates: start: 20050425, end: 20050502
  2. CALCIPARINE [Suspect]
     Dosage: SC
     Route: 058
     Dates: start: 20050408
  3. CIPROFLAXACIN [Suspect]
     Indication: LUNG INFECTION
     Dosage: 500 MG 2X PER 1 DAY ORAL
     Route: 048
     Dates: start: 20050415, end: 20050429
  4. GENTAMICIN [Suspect]
     Indication: LUNG INFECTION
     Dosage: 200 MG 1X PER 1 DAY IV
     Route: 042
     Dates: start: 20050415, end: 20050429
  5. IMOVANE (ZOPICLONE, , 0) [Suspect]
     Indication: DEPRESSION
     Dosage: ORAL
     Route: 048
     Dates: end: 20050509
  6. NEURONTIN [Suspect]
     Indication: NEUROPATHY PERIPHERAL
     Dosage: ORAL
     Route: 048
     Dates: end: 20050509
  7. XATRAL (ALFUZOSIN) [Concomitant]

REACTIONS (5)
  - BONE MARROW TOXICITY [None]
  - CONDITION AGGRAVATED [None]
  - MARROW HYPERPLASIA [None]
  - METAMYELOCYTE COUNT INCREASED [None]
  - NEUTROPENIA [None]
